FAERS Safety Report 4987026-4 (Version None)
Quarter: 2006Q2

REPORT INFORMATION
  Report Type: 
  Country: None (occurrence: None)
  Receive Date: 20060501
  Receipt Date: 20060421
  Transmission Date: 20061013
  Serious: Yes (Other)
  Sender: FDA-Public Use
  Company Number: IL-AVENTIS-200614407GDDC

PATIENT
  Sex: Male

DRUGS (1)
  1. ARAVA [Suspect]
     Indication: RHEUMATOID NODULE
     Dosage: DOSE: UNK

REACTIONS (5)
  - BONE DISORDER [None]
  - LUNG NEOPLASM [None]
  - MONOCYTOPENIA [None]
  - PAIN IN EXTREMITY [None]
  - PRODUCTIVE COUGH [None]
